FAERS Safety Report 5383395-4 (Version None)
Quarter: 2007Q3

REPORT INFORMATION
  Report Type: 
  Country: None (occurrence: None)
  Receive Date: 20070710
  Receipt Date: 20070629
  Transmission Date: 20080115
  Serious: Yes (Other)
  Sender: FDA-Public Use
  Company Number: FR-PFIZER INC-2007054991

PATIENT
  Sex: Female

DRUGS (6)
  1. LYRICA [Suspect]
     Indication: GENERALISED ANXIETY DISORDER
  2. PROTHIADEN [Concomitant]
  3. VASTAREL [Concomitant]
  4. KARDEGIC [Concomitant]
  5. CALCIUM W/COLECALCIFEROL [Concomitant]
  6. POVIDONE [Concomitant]

REACTIONS (1)
  - OCULAR HYPERTENSION [None]
